FAERS Safety Report 7497865-6 (Version None)
Quarter: 2011Q2

REPORT INFORMATION
  Report Type: 
  Country: None (occurrence: None)
  Receive Date: 20110524
  Receipt Date: 20110505
  Transmission Date: 20111010
  Serious: Yes (Hospitalization, Other)
  Sender: FDA-Public Use
  Company Number: US-BAYER-200937856NA

PATIENT
  Age: 51 Year
  Sex: Male
  Weight: 126.98 kg

DRUGS (42)
  1. ALBUMIN (HUMAN) [Concomitant]
     Indication: PRODUCT USED FOR UNKNOWN INDICATION
  2. LIDOCAINE [Concomitant]
     Indication: PRODUCT USED FOR UNKNOWN INDICATION
  3. MAGNESIUM SULFATE [Concomitant]
     Indication: PRODUCT USED FOR UNKNOWN INDICATION
  4. TRASYLOL [Suspect]
     Dosage: UNKNOWN LOADING DOSE
     Route: 042
     Dates: start: 20040715, end: 20040715
  5. AMIODARONE HCL [Concomitant]
     Indication: PRODUCT USED FOR UNKNOWN INDICATION
  6. PAPAVERINE [Concomitant]
     Indication: PRODUCT USED FOR UNKNOWN INDICATION
  7. PLATELETS [Concomitant]
  8. ZESTRIL [Concomitant]
     Dosage: 30 MG, QD
     Route: 048
  9. AVAPRO [Concomitant]
     Indication: TYPE 2 DIABETES MELLITUS
     Dosage: 150 MG, UNK
     Route: 048
  10. AMLODIPINE [Concomitant]
     Indication: PRODUCT USED FOR UNKNOWN INDICATION
     Dosage: 5 MG, UNK
     Route: 048
  11. NITROGLYCERIN [Concomitant]
     Indication: PRODUCT USED FOR UNKNOWN INDICATION
  12. LEVOPHED [Concomitant]
     Indication: PRODUCT USED FOR UNKNOWN INDICATION
  13. EPINEPHRINE [Concomitant]
     Indication: PRODUCT USED FOR UNKNOWN INDICATION
  14. CEFAZOLIN [Concomitant]
     Indication: PRODUCT USED FOR UNKNOWN INDICATION
  15. HEPARIN [Concomitant]
     Indication: PRODUCT USED FOR UNKNOWN INDICATION
  16. SODIUM BICARBONATE [Concomitant]
     Indication: PRODUCT USED FOR UNKNOWN INDICATION
  17. TRASYLOL [Suspect]
     Indication: CORONARY ARTERY BYPASS
     Dosage: 100ML VIA CARDIOPULMONARY BYPASS
     Route: 042
     Dates: start: 20040715, end: 20040715
  18. TRASYLOL [Suspect]
     Dosage: 25ML/HOUR DRIP
     Route: 042
     Dates: start: 20040715, end: 20040715
  19. TRASYLOL [Suspect]
  20. LIPITOR [Concomitant]
     Indication: PRODUCT USED FOR UNKNOWN INDICATION
     Route: 048
  21. FENTANYL [Concomitant]
     Indication: PRODUCT USED FOR UNKNOWN INDICATION
  22. PAVULON [Concomitant]
     Indication: PRODUCT USED FOR UNKNOWN INDICATION
  23. SUFENTA PRESERVATIVE FREE [Concomitant]
     Indication: PRODUCT USED FOR UNKNOWN INDICATION
  24. MILRINONE [Concomitant]
     Indication: PRODUCT USED FOR UNKNOWN INDICATION
  25. MARCAINE [Concomitant]
     Indication: PRODUCT USED FOR UNKNOWN INDICATION
  26. MECLIZINE [Concomitant]
     Dosage: UNK UNK, PRN
  27. ZAROXOLYN [Concomitant]
     Indication: PRODUCT USED FOR UNKNOWN INDICATION
     Route: 048
  28. NORMAL SALINE [Concomitant]
     Indication: PRODUCT USED FOR UNKNOWN INDICATION
  29. RED BLOOD CELLS [Concomitant]
  30. XANAX [Concomitant]
     Dosage: 0.5 MG, PRN
     Route: 048
  31. NOVOLIN [INSULIN] [Concomitant]
     Dosage: 75 U, BID
     Route: 058
  32. ZOLOFT [Concomitant]
     Dosage: 50 MG, QD
  33. ACIPHEX [Concomitant]
     Dosage: 20 MG, UNK
     Route: 048
  34. ADVAIR DISKUS 100/50 [Concomitant]
     Dosage: 100/50 UNK, INHALED, BID
  35. ACETYLSALICYLIC ACID SRT [Concomitant]
     Indication: PRODUCT USED FOR UNKNOWN INDICATION
     Dosage: 325 MG, UNK
     Route: 048
  36. INSULIN [Concomitant]
     Indication: PRODUCT USED FOR UNKNOWN INDICATION
     Route: 048
  37. ISOFLURANE [Concomitant]
     Indication: PRODUCT USED FOR UNKNOWN INDICATION
  38. VERSED [Concomitant]
     Indication: PRODUCT USED FOR UNKNOWN INDICATION
  39. ETOMIDATE [Concomitant]
     Indication: PRODUCT USED FOR UNKNOWN INDICATION
  40. PROTAMINE SULFATE [Concomitant]
     Indication: PRODUCT USED FOR UNKNOWN INDICATION
  41. MANNITOL [Concomitant]
     Indication: PRODUCT USED FOR UNKNOWN INDICATION
  42. SUCCINYLCHOLINE CHLORIDE [Concomitant]
     Indication: PRODUCT USED FOR UNKNOWN INDICATION

REACTIONS (10)
  - RENAL IMPAIRMENT [None]
  - STRESS [None]
  - ANXIETY [None]
  - FEAR [None]
  - RENAL INJURY [None]
  - INJURY [None]
  - EMOTIONAL DISTRESS [None]
  - RENAL FAILURE [None]
  - UNEVALUABLE EVENT [None]
  - PAIN [None]
